FAERS Safety Report 23089521 (Version 2)
Quarter: 2023Q4

REPORT INFORMATION
  Report Type: Report from Study
  Country: US (occurrence: US)
  Receive Date: 20231020
  Receipt Date: 20231120
  Transmission Date: 20240109
  Serious: No
  Sender: FDA-Public Use
  Company Number: US-SA-SAC20231018001764

PATIENT
  Age: 69 Year
  Sex: Male

DRUGS (1)
  1. JEVTANA [Suspect]
     Active Substance: CABAZITAXEL
     Indication: Prostate cancer
     Dosage: 60MG/15ML KIT, Q3W
     Route: 042
     Dates: start: 20230919

REACTIONS (1)
  - Weight fluctuation [Unknown]
